FAERS Safety Report 21058397 (Version 1)
Quarter: 2022Q3

REPORT INFORMATION
  Report Type: Spontaneous
  Country: US (occurrence: None)
  Receive Date: 20220708
  Receipt Date: 20220708
  Transmission Date: 20221027
  Serious: Yes (Hospitalization)
  Sender: FDA-Public Use
  Company Number: None

PATIENT
  Sex: Male
  Weight: 95.5 kg

DRUGS (2)
  1. CARBOPLATIN [Suspect]
     Active Substance: CARBOPLATIN
     Dates: end: 20210713
  2. TAXOL [Suspect]
     Active Substance: PACLITAXEL
     Dates: end: 20210713

REACTIONS (28)
  - Blood chloride decreased [None]
  - Haemoglobin decreased [None]
  - Platelet count decreased [None]
  - Pyrexia [None]
  - Troponin increased [None]
  - Lipase increased [None]
  - Blood lactic acid decreased [None]
  - Protein urine present [None]
  - Blood urine present [None]
  - Bacterial test positive [None]
  - Crystal urine present [None]
  - Urinary casts [None]
  - Fluid retention [None]
  - Diarrhoea [None]
  - Bladder dilatation [None]
  - Oesophageal disorder [None]
  - Impaired gastric emptying [None]
  - Gastrooesophageal reflux disease [None]
  - Pleural effusion [None]
  - Abdominal pain lower [None]
  - Nausea [None]
  - Vomiting [None]
  - Urinary retention [None]
  - Neutropenia [None]
  - Fatigue [None]
  - Acute kidney injury [None]
  - Hyponatraemia [None]
  - Hypophosphataemia [None]

NARRATIVE: CASE EVENT DATE: 20210723
